FAERS Safety Report 10842407 (Version 3)
Quarter: 2015Q2

REPORT INFORMATION
  Report Type: Spontaneous
  Country: US (occurrence: US)
  Receive Date: 20150220
  Receipt Date: 20150410
  Transmission Date: 20150821
  Serious: Yes (Other)
  Sender: FDA-Public Use
  Company Number: US-PFIZER INC-2015062141

PATIENT
  Age: 39 Year
  Sex: Female
  Weight: 59 kg

DRUGS (3)
  1. EFFEXOR XR [Suspect]
     Active Substance: VENLAFAXINE HYDROCHLORIDE
     Indication: DEPRESSION
     Dosage: UNK
     Dates: start: 1997
  2. TOPAMAX [Concomitant]
     Active Substance: TOPIRAMATE
     Indication: MIGRAINE
     Dosage: 200 MG, 1X/DAY (AT NIGHT)
     Dates: start: 2006
  3. EFFEXOR XR [Suspect]
     Active Substance: VENLAFAXINE HYDROCHLORIDE
     Dosage: 300 MG, 1X/DAY
     Dates: start: 1998, end: 20150205

REACTIONS (12)
  - Dizziness [Recovered/Resolved]
  - Product quality issue [Recovered/Resolved]
  - Fear [Recovered/Resolved]
  - Tinnitus [Recovered/Resolved]
  - Drug withdrawal syndrome [Recovered/Resolved]
  - Head discomfort [Recovered/Resolved]
  - Bradyphrenia [Recovered/Resolved]
  - Influenza like illness [Recovered/Resolved]
  - Suicidal ideation [Recovered/Resolved]
  - Hypokinesia [Recovered/Resolved]
  - Feeling abnormal [Recovered/Resolved]
  - Nausea [Recovered/Resolved]

NARRATIVE: CASE EVENT DATE: 20150131
